FAERS Safety Report 9597519 (Version 1)
Quarter: 2013Q4

REPORT INFORMATION
  Report Type: Spontaneous
  Country: US (occurrence: US)
  Receive Date: 20131004
  Receipt Date: 20131004
  Transmission Date: 20140711
  Serious: No
  Sender: FDA-Public Use
  Company Number: US-AMGEN-USASP2013019664

PATIENT
  Age: 36 Year
  Sex: Female

DRUGS (6)
  1. ENBREL [Suspect]
     Indication: RHEUMATOID ARTHRITIS
     Dosage: 50 MG, QWK
     Route: 058
     Dates: end: 201212
  2. ZOCOR [Concomitant]
     Dosage: 40 MG, UNK
  3. PLAQUENIL                          /00072602/ [Concomitant]
     Dosage: 200 MG, UNK
  4. PERCOCET                           /00446701/ [Concomitant]
     Dosage: 10-325 MG, UNK
  5. CALCIUM +D                         /00944201/ [Concomitant]
     Dosage: UNK
  6. METHOTREXATE [Concomitant]
     Dosage: 20 MG, UNK

REACTIONS (2)
  - Therapeutic response decreased [Unknown]
  - Rheumatoid arthritis [Unknown]
